FAERS Safety Report 7539097-9 (Version None)
Quarter: 2011Q2

REPORT INFORMATION
  Report Type: 
  Country: None (occurrence: None)
  Receive Date: 20110524
  Receipt Date: 20110407
  Transmission Date: 20111010
  Serious: No
  Sender: FDA-Public Use
  Company Number: 030884

PATIENT
  Sex: Female
  Weight: 70.3 kg

DRUGS (3)
  1. CHLORDIAZEPOXIDE W/CLIDINIUM [Concomitant]
  2. CIMZIA [Suspect]
     Indication: CROHN'S DISEASE
     Dosage: (400 MG 1X/MONTH SUBCUTANEOUS)
     Route: 058
     Dates: start: 20090101
  3. CIMZIA [Suspect]
     Indication: CROHN'S DISEASE
     Dosage: (400 MG 1X/MONTH SUBCUTANEOUS)
     Route: 058
     Dates: start: 20090101, end: 20090101

REACTIONS (2)
  - INJECTION SITE DISCOLOURATION [None]
  - FATIGUE [None]
